FAERS Safety Report 20680805 (Version 3)
Quarter: 2023Q2

REPORT INFORMATION
  Report Type: Report from Study
  Country: CN (occurrence: CN)
  Receive Date: 20220406
  Receipt Date: 20230420
  Transmission Date: 20230722
  Serious: Yes (Hospitalization)
  Sender: FDA-Public Use
  Company Number: CN-ABBVIE-22P-035-4309181-00

PATIENT
  Age: 34 Year
  Sex: Female

DRUGS (4)
  1. RISANKIZUMAB [Suspect]
     Active Substance: RISANKIZUMAB
     Indication: Crohn^s disease
     Route: 042
     Dates: start: 20211215, end: 20220210
  2. RISANKIZUMAB [Suspect]
     Active Substance: RISANKIZUMAB
     Indication: Crohn^s disease
     Dosage: DOSAGE: 360 MG
     Route: 058
     Dates: start: 20220427
  3. AZATHIOPRINE [Concomitant]
     Active Substance: AZATHIOPRINE
     Indication: Crohn^s disease
     Route: 048
     Dates: start: 20210603
  4. ENTERAL NUTRITION POWDER TP [Concomitant]
     Indication: Prophylaxis
     Dosage: DOSE UNKNOWN, IRREGULAR USE
     Route: 048
     Dates: start: 202009

REACTIONS (1)
  - Cystitis [Recovered/Resolved]

NARRATIVE: CASE EVENT DATE: 20220307
